FAERS Safety Report 20919350 (Version 1)
Quarter: 2022Q2

REPORT INFORMATION
  Report Type: Spontaneous
  Country: CH (occurrence: CH)
  Receive Date: 20220606
  Receipt Date: 20220606
  Transmission Date: 20220721
  Serious: Yes (Death, Hospitalization, Other)
  Sender: FDA-Public Use
  Company Number: None

PATIENT
  Age: 84 Year
  Sex: Female
  Weight: 57.3 kg

DRUGS (1)
  1. DOXYCYCLINE [Suspect]
     Active Substance: DOXYCYCLINE
     Indication: Pemphigoid
     Dosage: UNIT DOSE : 100 MG , DURATION : 99 DAYS , FREQUENCY TIME : 2 DAYS
     Route: 048
     Dates: start: 20220116, end: 20220425

REACTIONS (5)
  - Anaemia [Fatal]
  - Renal failure [Fatal]
  - Liver injury [Fatal]
  - Hypotension [Fatal]
  - Dizziness [Fatal]
